FAERS Safety Report 20551639 (Version 9)
Quarter: 2022Q3

REPORT INFORMATION
  Report Type: Report from Study
  Country: US (occurrence: US)
  Receive Date: 20220304
  Receipt Date: 20220713
  Transmission Date: 20221027
  Serious: Yes (Hospitalization, Other)
  Sender: FDA-Public Use
  Company Number: NVSC2022US051072

PATIENT
  Age: 75 Year
  Sex: Male

DRUGS (4)
  1. ENTRESTO [Suspect]
     Active Substance: SACUBITRIL\VALSARTAN
     Indication: Product used for unknown indication
     Dosage: 0.5 DOSAGE FORM, BID
     Route: 048
     Dates: start: 202201
  2. ENTRESTO [Suspect]
     Active Substance: SACUBITRIL\VALSARTAN
     Dosage: 1 DOSAGE FORM, BID
     Route: 065
  3. ENTRESTO [Suspect]
     Active Substance: SACUBITRIL\VALSARTAN
     Dosage: 2 DOSAGE FORM, BID (ABOUT 2 WEEKS NOW, 24/26 MG)
     Route: 065
  4. WARFARIN [Concomitant]
     Active Substance: WARFARIN
     Indication: Product used for unknown indication
     Dosage: UNK
     Route: 065

REACTIONS (16)
  - COVID-19 [Recovered/Resolved with Sequelae]
  - Headache [Unknown]
  - Dyspnoea [Unknown]
  - Cough [Not Recovered/Not Resolved]
  - International normalised ratio increased [Recovering/Resolving]
  - Pneumonia [Unknown]
  - Pulmonary oedema [Unknown]
  - Pneumothorax [Unknown]
  - Pleural effusion [Unknown]
  - Weight decreased [Unknown]
  - Nasopharyngitis [Recovering/Resolving]
  - Decreased activity [Unknown]
  - Weight fluctuation [Unknown]
  - Asthenia [Unknown]
  - Prescribed underdose [Recovered/Resolved]
  - Wrong technique in product usage process [Recovered/Resolved]

NARRATIVE: CASE EVENT DATE: 20220301
